FAERS Safety Report 4339824-8 (Version None)
Quarter: 2004Q2

REPORT INFORMATION
  Report Type: 
  Country: None (occurrence: None)
  Receive Date: 20040416
  Receipt Date: 20040316
  Transmission Date: 20050107
  Serious: Yes (Other)
  Sender: FDA-Public Use
  Company Number: PHNU2004DE01242

PATIENT
  Sex: Male

DRUGS (4)
  1. TEGRETOL [Suspect]
     Indication: PROPHYLAXIS AGAINST ALCOHOLIC WITHDRAWAL SYNDROME
     Dosage: 300 MG/D
     Route: 065
     Dates: start: 20031201, end: 20040311
  2. ALPHA LIPOIC ACID [Concomitant]
  3. DILATREND [Concomitant]
     Dosage: 50 MG/D
     Route: 048
  4. INSULIN                                 /N/A/ [Concomitant]

REACTIONS (4)
  - AMMONIA INCREASED [None]
  - CONCOMITANT DISEASE AGGRAVATED [None]
  - CONFUSIONAL STATE [None]
  - GLOBAL AMNESIA [None]
